FAERS Safety Report 8551692-7 (Version None)
Quarter: 2012Q3

REPORT INFORMATION
  Report Type: 
  Country: None (occurrence: None)
  Receive Date: 20120730
  Receipt Date: 20120726
  Transmission Date: 20120928
  Serious: Yes (Death, Hospitalization)
  Sender: FDA-Public Use
  Company Number: BR-B.I. PHARMACEUTICALS,INC./RIDGEFIELD-2012-BR-00777BR

PATIENT
  Age: 85 Year
  Sex: Female

DRUGS (4)
  1. CELOSOK [Concomitant]
  2. DIOVAN [Concomitant]
  3. PRADAXA [Suspect]
     Indication: CEREBROVASCULAR ACCIDENT PROPHYLAXIS
     Dosage: 220 MG
     Route: 048
     Dates: start: 20110101, end: 20120708
  4. PRADAXA [Suspect]
     Indication: ATRIAL FIBRILLATION

REACTIONS (2)
  - GASTROINTESTINAL HAEMORRHAGE [None]
  - MEDICATION ERROR [None]
